FAERS Safety Report 20911668 (Version 1)
Quarter: 2022Q2

REPORT INFORMATION
  Report Type: Spontaneous
  Country: US (occurrence: None)
  Receive Date: 20220603
  Receipt Date: 20220603
  Transmission Date: 20220720
  Serious: No
  Sender: FDA-Public Use
  Company Number: 2022A178299

PATIENT
  Age: 1078 Month
  Sex: Male
  Weight: 91.2 kg

DRUGS (5)
  1. SYMBICORT [Suspect]
     Active Substance: BUDESONIDE\FORMOTEROL FUMARATE DIHYDRATE
     Indication: Chronic obstructive pulmonary disease
     Dosage: 160/4 .5MCG 2 PUFFS TWICE DAILY
     Route: 055
     Dates: start: 202204, end: 20220410
  2. WARFARIN [Concomitant]
     Active Substance: WARFARIN
  3. DEVICE [Concomitant]
     Active Substance: DEVICE
  4. MEDICATION FOR HIGH CHOLESTEROL [Concomitant]
  5. UNSPECIFIED INGREDIENT [Concomitant]
     Active Substance: UNSPECIFIED INGREDIENT

REACTIONS (7)
  - Confusional state [Recovered/Resolved]
  - Hallucination [Recovered/Resolved]
  - Abdominal pain [Unknown]
  - Bowel movement irregularity [Unknown]
  - Hypersomnia [Recovered/Resolved]
  - Irritability [Recovered/Resolved]
  - Behaviour disorder [Recovered/Resolved]

NARRATIVE: CASE EVENT DATE: 20220401
